FAERS Safety Report 5775907-3 (Version None)
Quarter: 2008Q2

REPORT INFORMATION
  Report Type: 
  Country: None (occurrence: None)
  Receive Date: 20080617
  Receipt Date: 20080610
  Transmission Date: 20081010
  Serious: Yes (Other)
  Sender: FDA-Public Use
  Company Number: FR-VALEANT-2008VX001271

PATIENT
  Age: 83 Year
  Sex: Female

DRUGS (4)
  1. PERMAX [Suspect]
     Indication: PARKINSON'S DISEASE
     Route: 048
     Dates: start: 20030101, end: 20080415
  2. MODOPAR [Concomitant]
     Route: 065
  3. PAROXETINE HCL [Concomitant]
     Route: 065
  4. MOPRAL [Concomitant]
     Route: 065
     Dates: end: 20080501

REACTIONS (4)
  - ANXIETY [None]
  - CONFUSIONAL STATE [None]
  - DRUG WITHDRAWAL SYNDROME [None]
  - HALLUCINATION [None]
